FAERS Safety Report 5152942-X (Version None)
Quarter: 2006Q4

REPORT INFORMATION
  Report Type: 
  Country: None (occurrence: None)
  Receive Date: 20061114
  Receipt Date: 20061114
  Transmission Date: 20070319
  Serious: No
  Sender: FDA-Public Use
  Company Number: None

PATIENT
  Age: 83 Year
  Sex: Female

DRUGS (1)
  1. NOVOLIN 70/30 [Suspect]
     Dosage: INJECTION  MULTIDOSE VIAL

REACTIONS (2)
  - DRUG DOSE OMISSION [None]
  - MEDICATION ERROR [None]
